FAERS Safety Report 4893497-4 (Version None)
Quarter: 2006Q1

REPORT INFORMATION
  Report Type: 
  Country: None (occurrence: None)
  Receive Date: 20060127
  Receipt Date: 20051205
  Transmission Date: 20060701
  Serious: No
  Sender: FDA-Public Use
  Company Number: US-BRISTOL-MYERS SQUIBB COMPANY-13205000

PATIENT
  Sex: Female

DRUGS (1)
  1. KENALOG [Suspect]
     Indication: MONARTHRITIS
     Dates: start: 20041115, end: 20050210

REACTIONS (1)
  - INJECTION SITE REACTION [None]
